FAERS Safety Report 22022204 (Version 2)
Quarter: 2023Q1

REPORT INFORMATION
  Report Type: Spontaneous
  Country: US (occurrence: US)
  Receive Date: 20230222
  Receipt Date: 20230313
  Transmission Date: 20230418
  Serious: Yes (Other)
  Sender: FDA-Public Use
  Company Number: US-BRISTOL-MYERS SQUIBB COMPANY-2023-026014

PATIENT
  Age: 88 Year
  Sex: Male

DRUGS (4)
  1. REVLIMID [Suspect]
     Active Substance: LENALIDOMIDE
     Indication: Plasma cell myeloma
     Dosage: DAILY 21 DAYS ON 7 OFF
     Route: 048
     Dates: start: 20230113, end: 20230224
  2. REVLIMID [Suspect]
     Active Substance: LENALIDOMIDE
     Route: 048
     Dates: start: 202302
  3. DARATUMUMAB [Concomitant]
     Active Substance: DARATUMUMAB
     Indication: Plasma cell myeloma
     Route: 058
     Dates: start: 20230113
  4. DEXAMETHASONE [Concomitant]
     Active Substance: DEXAMETHASONE
     Indication: Plasma cell myeloma

REACTIONS (1)
  - Neutropenia [Recovered/Resolved]

NARRATIVE: CASE EVENT DATE: 20230203
